FAERS Safety Report 9631222 (Version 1)
Quarter: 2013Q4

REPORT INFORMATION
  Report Type: Spontaneous
  Country: US (occurrence: US)
  Receive Date: 20131018
  Receipt Date: 20131018
  Transmission Date: 20140711
  Serious: Yes (Hospitalization)
  Sender: FDA-Public Use
  Company Number: US-BAYER-2013-126448

PATIENT
  Age: 43 Year
  Sex: Female

DRUGS (20)
  1. YASMIN [Suspect]
  2. AZITHROMYCIN [Concomitant]
     Dosage: 6-250 MG, 7-500 MG, ONE EVERY MORNING
     Dates: start: 20060912
  3. NASONEX [Concomitant]
     Dosage: 50 ?G, ONE TO TEO SPRAY IN EACH NOSTRIL EVERY DAY
     Dates: start: 20060912
  4. HISTINEX HC [Concomitant]
     Indication: COUGH
     Dosage: ONE TO ONE HALF TO 2 TEASPOONSFUL THREE TIMES A DAY AS NEEDED
     Dates: start: 20060912
  5. LEVAQUIN [Concomitant]
     Dosage: 500 MG, 8 DISPENSED ONE TABLET EVERY DAY
     Route: 048
     Dates: start: 20060918
  6. LEVAQUIN [Concomitant]
     Dosage: UNK
     Dates: start: 20060919
  7. CARISOPRODOL [Concomitant]
     Dosage: 350 MG, TWO TIMES A DAY AS NEEDED
     Route: 048
     Dates: start: 20060919
  8. CARISOPRODOL [Concomitant]
     Dosage: UNK
     Dates: start: 20060920
  9. VICODIN [Concomitant]
     Dosage: 5/500 MG, TWO TABLETS EVERY 6 HOURS AS NEEDED
     Route: 048
  10. HYDROMORPHONE [Concomitant]
     Indication: PAIN
     Dosage: 2 MG, ONE EVERY 12 HOURS AS NEEDED
     Route: 048
     Dates: start: 20060920
  11. ROCEPHIN [Concomitant]
     Dosage: 1 G, DAILY
  12. ZITHROMAX [Concomitant]
     Dosage: 500 MG, DAILY
  13. ZITHROMAX [Concomitant]
     Dosage: 250 MG, UNK
  14. PROTONIX [Concomitant]
  15. AMBIEN [Concomitant]
  16. MOM [Concomitant]
  17. VANCOMYCIN [Concomitant]
     Dosage: 1 G, EVERY 12 HOURS
  18. DARVOCET-N [Concomitant]
  19. LIDOCAINE [Concomitant]
  20. PROVENTIL [Concomitant]
     Dosage: EVERY 4 HOURS

REACTIONS (1)
  - Pulmonary embolism [None]
